FAERS Safety Report 8618165-4 (Version None)
Quarter: 2012Q3

REPORT INFORMATION
  Report Type: 
  Country: None (occurrence: None)
  Receive Date: 20120824
  Receipt Date: 20120405
  Transmission Date: 20120928
  Serious: Yes (Other)
  Sender: FDA-Public Use
  Company Number: US-ASTRAZENECA-2012SE22664

PATIENT
  Age: 62 Year
  Sex: Female
  Weight: 66.2 kg

DRUGS (8)
  1. PREVACID [Concomitant]
     Indication: GASTROOESOPHAGEAL REFLUX DISEASE
     Dosage: EVERY DAY
  2. NEBULIZING MEDICATION [Concomitant]
  3. FLONASE [Concomitant]
     Indication: ASTHMA
     Dosage: TWO TIMES A DAY
  4. PREDNISONE TAB [Concomitant]
     Indication: ADJUVANT THERAPY
  5. SLEEPING PILL [Concomitant]
     Dosage: EVERY DAY
  6. MUCINEX [Concomitant]
  7. SYMBICORT [Suspect]
     Dosage: 1 PUFF BID
     Route: 055
     Dates: start: 20120301
  8. SYMBICORT [Suspect]
     Indication: ASTHMA
     Dosage: 2 PUFFS BID
     Route: 055
     Dates: start: 20120326

REACTIONS (8)
  - THROAT IRRITATION [None]
  - FREQUENT BOWEL MOVEMENTS [None]
  - PAIN [None]
  - OFF LABEL USE [None]
  - ABDOMINAL PAIN UPPER [None]
  - HYPOAESTHESIA [None]
  - NERVOUSNESS [None]
  - TREMOR [None]
